FAERS Safety Report 9879554 (Version 2)
Quarter: 2014Q1

REPORT INFORMATION
  Report Type: Spontaneous
  Country: US (occurrence: US)
  Receive Date: 20140206
  Receipt Date: 20140206
  Transmission Date: 20141002
  Serious: Yes (Hospitalization)
  Sender: FDA-Public Use
  Company Number: US-B.I. PHARMACEUTICALS,INC./RIDGEFIELD-2013-BI-27304BP

PATIENT
  Age: 70 Year
  Sex: Male
  Weight: 65.77 kg

DRUGS (7)
  1. PRADAXA [Suspect]
     Indication: PRODUCT USED FOR UNKNOWN INDICATION
     Dates: start: 20120106, end: 20120626
  2. ALLOPURINOL [Concomitant]
     Dosage: 100 MG
     Route: 048
  3. ASPIRIN [Concomitant]
     Dosage: 81 MG
     Route: 048
  4. CARVEDILOL [Concomitant]
     Dosage: 1.25 MG
     Route: 048
  5. DIGOXIN [Concomitant]
     Dosage: 0.25 MG
     Route: 048
  6. METFORMIN [Concomitant]
     Dosage: 2000 MG
     Route: 048
  7. PRAVASTATIN [Concomitant]
     Dosage: 40 MG
     Route: 048

REACTIONS (4)
  - Gastrointestinal haemorrhage [Unknown]
  - Microcytic anaemia [Unknown]
  - Myocardial infarction [Unknown]
  - Renal failure acute [Recovered/Resolved]
